FAERS Safety Report 8945234 (Version 1)
Quarter: 2012Q4

REPORT INFORMATION
  Report Type: Report from Study
  Country: DE (occurrence: DE)
  Receive Date: 20121205
  Receipt Date: 20121205
  Transmission Date: 20130627
  Serious: Yes (Death, Hospitalization)
  Sender: FDA-Public Use
  Company Number: DE-BAYER-2011-057250

PATIENT
  Sex: Female
  Weight: 75 kg

DRUGS (12)
  1. SORAFENIB [Suspect]
     Indication: OVARIAN CANCER
     Dosage: 800 mg, QD
     Route: 048
     Dates: start: 20110702, end: 20110707
  2. SORAFENIB [Suspect]
     Indication: OVARIAN CANCER
     Dosage: UNK
     Dates: start: 20110712, end: 20110729
  3. SORAFENIB [Suspect]
     Indication: OVARIAN CANCER
     Dosage: 400 mg per day
     Route: 048
     Dates: start: 20110731, end: 20110801
  4. TOPOTECAN [Suspect]
     Dosage: 1.25 mg daily
     Route: 042
     Dates: start: 20110627, end: 20110701
  5. TOPOTECAN [Suspect]
     Dosage: 1 mg, QD
     Route: 042
     Dates: start: 20110725, end: 20110730
  6. ENALAPRIL [Concomitant]
     Indication: HYPERTENSION
     Dosage: 10 mg, QD
     Route: 048
     Dates: start: 20110703, end: 20110806
  7. FENTANYL [Concomitant]
     Indication: PAIN
     Dosage: 25 mg daily
     Route: 042
     Dates: start: 20110801, end: 20110802
  8. VOMEX A [Concomitant]
     Indication: SICKNESS
     Dosage: 62 mg, QD
     Route: 042
     Dates: start: 20110703, end: 20110705
  9. NUTRIFLEX [Concomitant]
  10. MORPHIN [Concomitant]
     Indication: PAIN
     Dosage: 100 mg, daily
     Route: 042
     Dates: start: 20110803, end: 20110806
  11. SUFENTA [Concomitant]
     Dosage: 250 ?g, daily
     Route: 042
     Dates: start: 20110803, end: 20110803
  12. CLEXANE [Concomitant]
     Indication: PROPHYLAXIS
     Dosage: 0.2 ml, QD
     Route: 042
     Dates: start: 20110703, end: 20110706

REACTIONS (7)
  - Neutropenia [Fatal]
  - Thrombocytopenia [Recovered/Resolved]
  - Nausea [Not Recovered/Not Resolved]
  - Subileus [Recovered/Resolved with Sequelae]
  - Vomiting [Recovered/Resolved]
  - Neutropenic sepsis [Fatal]
  - Septic shock [Fatal]
